FAERS Safety Report 10098184 (Version 1)
Quarter: 2014Q2

REPORT INFORMATION
  Report Type: Spontaneous
  Country: US (occurrence: US)
  Receive Date: 20140423
  Receipt Date: 20140423
  Transmission Date: 20141212
  Serious: Yes (Other)
  Sender: FDA-Public Use
  Company Number: US-BRISTOL-MYERS SQUIBB COMPANY-19926872

PATIENT
  Age: 67 Year
  Sex: Male

DRUGS (2)
  1. YERVOY [Suspect]
     Indication: MALIGNANT MELANOMA
     Dates: start: 2012
  2. CRESTOR [Concomitant]

REACTIONS (2)
  - Adrenal disorder [Unknown]
  - Colitis [Unknown]
